FAERS Safety Report 22092158 (Version 1)
Quarter: 2023Q1

REPORT INFORMATION
  Report Type: Spontaneous
  Country: US (occurrence: US)
  Receive Date: 20230314
  Receipt Date: 20230314
  Transmission Date: 20230418
  Serious: Yes (Other)
  Sender: FDA-Public Use
  Company Number: US-AMGEN-USASP2023039140

PATIENT
  Age: 67 Year
  Sex: Male

DRUGS (1)
  1. XGEVA [Suspect]
     Active Substance: DENOSUMAB
     Indication: Neoplasm malignant
     Dosage: 120 MILLIGRAM, QMO
     Route: 065

REACTIONS (10)
  - Abscess jaw [Not Recovered/Not Resolved]
  - Dental implant removal [Not Recovered/Not Resolved]
  - Exposed bone in jaw [Unknown]
  - Tooth disorder [Not Recovered/Not Resolved]
  - Jaw disorder [Not Recovered/Not Resolved]
  - Off label use [Unknown]
  - Jaw cyst [Not Recovered/Not Resolved]
  - Gingival recession [Not Recovered/Not Resolved]
  - Localised infection [Not Recovered/Not Resolved]
  - Impaired healing [Not Recovered/Not Resolved]

NARRATIVE: CASE EVENT DATE: 20220501
